FAERS Safety Report 13567316 (Version 1)
Quarter: 2017Q2

REPORT INFORMATION
  Report Type: Spontaneous
  Country: US (occurrence: US)
  Receive Date: 20170522
  Receipt Date: 20170522
  Transmission Date: 20170830
  Serious: No
  Sender: FDA-Public Use
  Company Number: US-MYLANLABS-2016M1032920

PATIENT
  Sex: Female

DRUGS (2)
  1. AMITRIPTYLINE HYDROCHLORIDE TABLETS, USP [Suspect]
     Active Substance: AMITRIPTYLINE HYDROCHLORIDE
     Indication: OFF LABEL USE
  2. AMITRIPTYLINE HYDROCHLORIDE TABLETS, USP [Suspect]
     Active Substance: AMITRIPTYLINE HYDROCHLORIDE
     Indication: NEURALGIA
     Dosage: 25 MG, QD, EVERY NIGHT
     Route: 048
     Dates: start: 2003

REACTIONS (2)
  - Gastrooesophageal reflux disease [Not Recovered/Not Resolved]
  - Back pain [Not Recovered/Not Resolved]

NARRATIVE: CASE EVENT DATE: 20160726
